FAERS Safety Report 8419574-9 (Version None)
Quarter: 2012Q2

REPORT INFORMATION
  Report Type: 
  Country: None (occurrence: None)
  Receive Date: 20120607
  Receipt Date: 20120531
  Transmission Date: 20120825
  Serious: Yes (Other)
  Sender: FDA-Public Use
  Company Number: FR-ROCHE-1068774

PATIENT
  Sex: Female
  Weight: 75 kg

DRUGS (2)
  1. ZELBORAF [Suspect]
     Dates: start: 20120528
  2. ZELBORAF [Suspect]
     Indication: METASTATIC MALIGNANT MELANOMA
     Dosage: TEMPORARILY DISCONTINUED
     Route: 048
     Dates: start: 20120406

REACTIONS (4)
  - DERMAL CYST [None]
  - RASH ERYTHEMATOUS [None]
  - CHOLESTASIS [None]
  - RASH MACULO-PAPULAR [None]
